FAERS Safety Report 17049139 (Version 2)
Quarter: 2019Q4

REPORT INFORMATION
  Report Type: Report from Study
  Country: None (occurrence: JP)
  Receive Date: 20191119
  Receipt Date: 20191120
  Transmission Date: 20200122
  Serious: Yes (Life-Threatening)
  Sender: FDA-Public Use
  Company Number: JP-ABBVIE-19K-087-3007610-00

PATIENT
  Age: 59 Year
  Sex: Female
  Weight: 61.7 kg

DRUGS (12)
  1. AMLODIPINE [Concomitant]
     Active Substance: AMLODIPINE BESYLATE
     Indication: HYPERTENSION
     Route: 048
     Dates: start: 20031212, end: 20140513
  2. URSODEOXYCHOLIC ACID [Concomitant]
     Active Substance: URSODIOL
     Indication: CHRONIC HEPATITIS C
     Route: 048
     Dates: start: 20120101, end: 20140916
  3. REBAMIPIDE [Concomitant]
     Active Substance: REBAMIPIDE
     Indication: ANTIINFLAMMATORY THERAPY
  4. REBAMIPIDE [Concomitant]
     Active Substance: REBAMIPIDE
     Indication: SPINAL STENOSIS
     Route: 048
     Dates: start: 20140628
  5. FELBINAC [Concomitant]
     Active Substance: FELBINAC
     Indication: SPINAL STENOSIS
     Dosage: PRN
     Route: 062
     Dates: start: 20140628
  6. POVIDONE-IODINE. [Concomitant]
     Active Substance: POVIDONE-IODINE
     Indication: SPINAL STENOSIS
     Dosage: PRN
     Route: 061
     Dates: start: 20140628, end: 20140628
  7. AMLODIPINE [Concomitant]
     Active Substance: AMLODIPINE BESYLATE
     Route: 048
     Dates: start: 20140514, end: 20141208
  8. LIDOCAINE. [Concomitant]
     Active Substance: LIDOCAINE
     Indication: SPINAL STENOSIS
     Dosage: PRN
     Route: 061
     Dates: start: 20140628, end: 20140628
  9. EPINASTINE HYDROCHLORIDE. [Concomitant]
     Active Substance: EPINASTINE HYDROCHLORIDE
     Indication: HYPERSENSITIVITY
     Route: 048
     Dates: start: 20100827
  10. CELECOXIB. [Concomitant]
     Active Substance: CELECOXIB
     Indication: SPINAL STENOSIS
     Route: 048
     Dates: start: 20140628
  11. VIEKIRAX [Suspect]
     Active Substance: OMBITASVIR\PARITAPREVIR\RITONAVIR
     Indication: HEPATITIS C
     Route: 048
     Dates: start: 20140401, end: 20140623
  12. TRIAMCINOLONE ACETONIDE. [Concomitant]
     Active Substance: TRIAMCINOLONE ACETONIDE
     Indication: STOMATITIS
     Dosage: PRN
     Route: 061
     Dates: start: 20140714, end: 20140716

REACTIONS (1)
  - Gastric cancer [Recovering/Resolving]

NARRATIVE: CASE EVENT DATE: 20190112
